FAERS Safety Report 5738095-5 (Version None)
Quarter: 2008Q2

REPORT INFORMATION
  Report Type: 
  Country: None (occurrence: None)
  Receive Date: 20080514
  Receipt Date: 20080507
  Transmission Date: 20081010
  Serious: No
  Sender: FDA-Public Use
  Company Number: US-BAXTER-2008BH004251

PATIENT
  Age: 44 Year
  Sex: Male
  Weight: 62 kg

DRUGS (8)
  1. HEPARIN SODIUM [Suspect]
     Indication: INAPPROPRIATE ANTIDIURETIC HORMONE SECRETION
     Dosage: DOSE UNIT:UNKNOWN
     Route: 058
     Dates: start: 20071005, end: 20071011
  2. HEPARIN SODIUM [Suspect]
     Indication: OFF LABEL USE
     Dosage: DOSE UNIT:UNKNOWN
     Route: 058
     Dates: start: 20071005, end: 20071011
  3. NEXIUM                                  /UNK/ [Concomitant]
     Indication: DRUG USE FOR UNKNOWN INDICATION
     Route: 048
  4. XANAX [Concomitant]
     Indication: ANXIETY
     Route: 065
  5. LASIX [Concomitant]
     Indication: DRUG USE FOR UNKNOWN INDICATION
     Route: 065
  6. SODIUM CHLORIDE [Concomitant]
     Indication: DRUG USE FOR UNKNOWN INDICATION
     Dosage: DOSE UNIT:UNKNOWN
     Route: 065
  7. ENSURE [Concomitant]
     Indication: DRUG USE FOR UNKNOWN INDICATION
     Dosage: DOSE UNIT:OTHER
     Route: 048
  8. POTASSIUM CHLORIDE [Concomitant]
     Indication: FLUID INTAKE RESTRICTION
     Route: 065

REACTIONS (3)
  - DYSPEPSIA [None]
  - PSORIASIS [None]
  - VOMITING [None]
